FAERS Safety Report 5255362-2 (Version None)
Quarter: 2007Q1

REPORT INFORMATION
  Report Type: 
  Country: None (occurrence: None)
  Receive Date: 20070228
  Receipt Date: 20070216
  Transmission Date: 20070707
  Serious: No
  Sender: FDA-Public Use
  Company Number: E3810-00645-SPO-US

PATIENT
  Age: 45 Year
  Sex: Female

DRUGS (3)
  1. ACIPHEX [Suspect]
     Indication: DYSPEPSIA
     Dosage: 20 MG, ORAL, 5 YEARS AGO
     Route: 048
  2. LIPITOR [Concomitant]
  3. HYPERTENSION MED (UNSPECIFIED) [Concomitant]

REACTIONS (8)
  - AMNESIA [None]
  - CENTRAL NERVOUS SYSTEM LESION [None]
  - HEADACHE [None]
  - MASS [None]
  - MULTIPLE SCLEROSIS [None]
  - NECK MASS [None]
  - NECK PAIN [None]
  - SPEECH DISORDER [None]
